FAERS Safety Report 6472737-4 (Version None)
Quarter: 2009Q4

REPORT INFORMATION
  Report Type: 
  Country: None (occurrence: None)
  Receive Date: 20091201
  Receipt Date: 20091118
  Transmission Date: 20100525
  Serious: Yes (Other)
  Sender: FDA-Public Use
  Company Number: 2007-155474-NL

PATIENT
  Age: 36 Year
  Sex: Male
  Weight: 72.1 kg

DRUGS (3)
  1. DEXAMETHASONE [Suspect]
     Indication: DRUG USE FOR UNKNOWN INDICATION
  2. REMICADE [Suspect]
     Indication: ANKYLOSING SPONDYLITIS
     Dosage: 5 MG/KG; IV
     Route: 042
  3. LISINOPRIL [Concomitant]

REACTIONS (1)
  - BLOOD BILIRUBIN INCREASED [None]
